FAERS Safety Report 9103229 (Version 4)
Quarter: 2015Q1

REPORT INFORMATION
  Report Type: Spontaneous
  Country: JP (occurrence: JP)
  Receive Date: 20130219
  Receipt Date: 20150206
  Transmission Date: 20150721
  Serious: Yes (Life-Threatening, Hospitalization, Other)
  Sender: FDA-Public Use
  Company Number: PHHY2013JP015268

PATIENT
  Sex: Female

DRUGS (3)
  1. PREDNISOLONE. [Concomitant]
     Active Substance: PREDNISOLONE
     Indication: POLYMYALGIA RHEUMATICA
     Dosage: 5 MG, QD
     Route: 065
  2. RIVASTIGMINE [Suspect]
     Active Substance: RIVASTIGMINE
     Route: 062
  3. RIVASTIGMINE [Suspect]
     Active Substance: RIVASTIGMINE
     Indication: DEMENTIA WITH LEWY BODIES
     Dosage: 4.5 MG, QD
     Route: 062

REACTIONS (6)
  - Cardiac failure congestive [Unknown]
  - Sinus arrest [Recovering/Resolving]
  - Cardiac arrest [Unknown]
  - Hypoxia [Unknown]
  - Myocardial infarction [Unknown]
  - Renal failure [Unknown]

NARRATIVE: CASE EVENT DATE: 20120717
